FAERS Safety Report 21099348 (Version 1)
Quarter: 2022Q3

REPORT INFORMATION
  Report Type: Spontaneous
  Country: US (occurrence: None)
  Receive Date: 20220719
  Receipt Date: 20220719
  Transmission Date: 20221027
  Serious: Yes (Hospitalization)
  Sender: FDA-Public Use
  Company Number: None

PATIENT
  Age: 67 Year
  Sex: Male

DRUGS (1)
  1. ABIRATERONE [Suspect]
     Active Substance: ABIRATERONE
     Dosage: FREQUENCY : DAILY;?
     Route: 048
     Dates: start: 202205

REACTIONS (9)
  - Hot flush [None]
  - Stent placement [None]
  - Urostomy [None]
  - Urinary tract infection [None]
  - Vomiting [None]
  - Gastrointestinal ulcer [None]
  - Gastrointestinal polyp [None]
  - Device related infection [None]
  - Therapy interrupted [None]

NARRATIVE: CASE EVENT DATE: 20220719
